FAERS Safety Report 9126882 (Version 1)
Quarter: 2013Q1

REPORT INFORMATION
  Report Type: Spontaneous
  Country: TN (occurrence: TN)
  Receive Date: 20130228
  Receipt Date: 20130228
  Transmission Date: 20140127
  Serious: Yes (Other)
  Sender: FDA-Public Use
  Company Number: TN-PFIZER INC-2013070253

PATIENT
  Sex: Female

DRUGS (1)
  1. VFEND [Suspect]
     Indication: OTITIS MEDIA FUNGAL
     Dosage: 200 MG, 1X/DAY
     Route: 048
     Dates: start: 201209

REACTIONS (2)
  - Subcutaneous abscess [Recovered/Resolved]
  - Aspergillus infection [Recovered/Resolved]
